FAERS Safety Report 4846441-X (Version None)
Quarter: 2005Q4

REPORT INFORMATION
  Report Type: 
  Country: None (occurrence: None)
  Receive Date: 20051202
  Receipt Date: 20051121
  Transmission Date: 20060501
  Serious: Yes (Hospitalization, Other)
  Sender: FDA-Public Use
  Company Number: 2005159160

PATIENT
  Age: 44 Year
  Sex: Male
  Weight: 149.687 kg

DRUGS (3)
  1. ZOLOFT [Suspect]
     Indication: DEPRESSION
     Dosage: 200 MG (200 MG, 1 IN 1 D), ORAL
     Route: 048
  2. GEODON [Suspect]
     Indication: ILL-DEFINED DISORDER
     Dosage: ORAL
     Route: 048
  3. RISPERDAL [Suspect]
     Indication: ILL-DEFINED DISORDER

REACTIONS (9)
  - ADVERSE DRUG REACTION [None]
  - DELUSION [None]
  - FATIGUE [None]
  - HALLUCINATION [None]
  - HEART RATE IRREGULAR [None]
  - OVERWEIGHT [None]
  - SOMNOLENCE [None]
  - VOMITING [None]
  - WEIGHT INCREASED [None]
